FAERS Safety Report 7652692-1 (Version None)
Quarter: 2011Q3

REPORT INFORMATION
  Report Type: 
  Country: None (occurrence: None)
  Receive Date: 20110802
  Receipt Date: 20110802
  Transmission Date: 20111222
  Serious: No
  Sender: FDA-Public Use
  Company Number: None

PATIENT
  Sex: Female
  Weight: 108.8633 kg

DRUGS (1)
  1. TOPIRAMATE [Suspect]
     Indication: FIBROMYALGIA
     Dosage: 100MG DAILY ORAL
     Route: 048
     Dates: start: 20110714, end: 20110724

REACTIONS (2)
  - MYALGIA [None]
  - INSOMNIA [None]
